FAERS Safety Report 4596483-7 (Version None)
Quarter: 2005Q1

REPORT INFORMATION
  Report Type: 
  Country: None (occurrence: None)
  Receive Date: 20050302
  Receipt Date: 20050221
  Transmission Date: 20050727
  Serious: Yes (Hospitalization)
  Sender: FDA-Public Use
  Company Number: DE-SANOFI-SYNTHELABO-A04200500158

PATIENT
  Age: 60 Year
  Sex: Female

DRUGS (6)
  1. REMERGIL [Interacting]
     Indication: DEPRESSION
     Dosage: 15 MG
     Route: 048
     Dates: start: 20031113, end: 20031113
  2. REMERGIL [Interacting]
     Dosage: 30 MG
     Route: 048
     Dates: start: 20031114, end: 20031125
  3. REMERGIL [Interacting]
     Dosage: 45 MG
     Route: 048
     Dates: start: 20031126, end: 20031229
  4. RISPERDAL [Interacting]
     Indication: DEPRESSION
     Dosage: 1 MG
     Route: 048
     Dates: start: 20031128, end: 20031203
  5. CARBAMAZEPINE [Interacting]
     Indication: EPILEPSY
     Dosage: 1000 MG
     Route: 048
  6. STILNOX [Suspect]
     Indication: DEPRESSION
     Dosage: 10 MG
     Route: 048
     Dates: start: 20031111

REACTIONS (7)
  - APHASIA [None]
  - BLOOD CREATINE PHOSPHOKINASE INCREASED [None]
  - CONFUSIONAL STATE [None]
  - DISORIENTATION [None]
  - HYPONATRAEMIA [None]
  - NAUSEA [None]
  - THINKING ABNORMAL [None]
